FAERS Safety Report 5019960-3 (Version None)
Quarter: 2006Q2

REPORT INFORMATION
  Report Type: 
  Country: None (occurrence: None)
  Receive Date: 20060601
  Receipt Date: 20060524
  Transmission Date: 20061013
  Serious: Yes (Hospitalization, Other)
  Sender: FDA-Public Use
  Company Number: HQWYE531224MAY06

PATIENT
  Age: 42 Year
  Sex: Female

DRUGS (4)
  1. ANADVIL RHUME (IBUPROFEN/PSEUDOEPHEDRINE HYDROCHLORIDE, TABLET) [Suspect]
     Indication: SINUSITIS
     Dosage: ORAL
     Route: 048
  2. VITAMIN E [Concomitant]
  3. SELENIUM (SELENIUM) [Concomitant]
  4. BETACAROTENE (BETACAROTENE) [Concomitant]

REACTIONS (1)
  - RHABDOMYOLYSIS [None]
